FAERS Safety Report 15090934 (Version 2)
Quarter: 2018Q3

REPORT INFORMATION
  Report Type: Spontaneous
  Country: JP (occurrence: JP)
  Receive Date: 20180629
  Receipt Date: 20180723
  Transmission Date: 20181010
  Serious: Yes (Other)
  Sender: FDA-Public Use
  Company Number: JP-ELI_LILLY_AND_COMPANY-JP201710001321

PATIENT
  Age: 61 Year
  Sex: Male

DRUGS (6)
  1. HIRUDOID [Concomitant]
     Active Substance: GLYCOSAMINOGLYCANS
     Indication: DERMATITIS
  2. CLARITHROMYCIN. [Concomitant]
     Active Substance: CLARITHROMYCIN
     Indication: DERMATITIS
     Dosage: UNK UNK, UNKNOWN
     Route: 065
     Dates: start: 2015
  3. DEXART [Concomitant]
     Active Substance: DEXAMETHASONE SODIUM PHOSPHATE
     Dosage: UNK UNK, UNKNOWN
     Route: 042
     Dates: start: 2015
  4. ERBITUX [Suspect]
     Active Substance: CETUXIMAB
     Indication: HEAD AND NECK CANCER
     Dosage: 700 MG, UNKNOWN
     Route: 041
     Dates: start: 20150408, end: 20150408
  5. ERBITUX [Suspect]
     Active Substance: CETUXIMAB
     Dosage: 450 MG, UNKNOWN
     Route: 041
     Dates: start: 20150415, end: 20150601
  6. POLARAMINE [Concomitant]
     Active Substance: DEXCHLORPHENIRAMINE MALEATE
     Indication: PRODUCT USED FOR UNKNOWN INDICATION
     Dosage: UNK UNK, UNKNOWN
     Route: 042
     Dates: start: 2015

REACTIONS (15)
  - Dry mouth [Not Recovered/Not Resolved]
  - Diarrhoea [Recovered/Resolved]
  - Paronychia [Recovering/Resolving]
  - Anaemia [Recovered/Resolved]
  - Mucosal infection [Recovered/Resolved]
  - Dysphagia [Unknown]
  - Radiation skin injury [Recovering/Resolving]
  - Hyperkalaemia [Recovered/Resolved]
  - Dermatitis acneiform [Recovering/Resolving]
  - Alanine aminotransferase increased [Recovered/Resolved]
  - Pharyngeal inflammation [Recovering/Resolving]
  - Stomatitis [Recovering/Resolving]
  - Nausea [Recovered/Resolved]
  - Decreased appetite [Recovered/Resolved]
  - Aspartate aminotransferase increased [Recovered/Resolved]

NARRATIVE: CASE EVENT DATE: 20150408
